FAERS Safety Report 23134283 (Version 1)
Quarter: 2023Q4

REPORT INFORMATION
  Report Type: Spontaneous
  Country: None (occurrence: US)
  Receive Date: 20231101
  Receipt Date: 20231101
  Transmission Date: 20240109
  Serious: Yes (Hospitalization)
  Sender: FDA-Public Use
  Company Number: US-Amphastar Pharmaceuticals, Inc.-2147677

PATIENT
  Age: 78 Year
  Sex: Male
  Weight: 88.889 kg

DRUGS (3)
  1. BAQSIMI [Suspect]
     Active Substance: GLUCAGON
     Route: 045
  2. BAQSIMI [Suspect]
     Active Substance: GLUCAGON
  3. INSULIN NOS [Concomitant]
     Active Substance: INSULIN NOS

REACTIONS (3)
  - Drug ineffective [Recovered/Resolved]
  - Hypoglycaemic unconsciousness [Recovered/Resolved]
  - Hospitalisation [Recovered/Resolved]

NARRATIVE: CASE EVENT DATE: 20230911
